FAERS Safety Report 4653016-4 (Version None)
Quarter: 2005Q2

REPORT INFORMATION
  Report Type: 
  Country: None (occurrence: None)
  Receive Date: 20050502
  Receipt Date: 20050502
  Transmission Date: 20051028
  Serious: Yes (Death)
  Sender: FDA-Public Use
  Company Number: None

PATIENT
  Age: 15 Year
  Sex: Male
  Weight: 61.2356 kg

DRUGS (1)
  1. PHENYLEPHRINE [Suspect]
     Indication: NASAL OPERATION
     Dosage: .5% SOLUTION ON COTTON PLEDGETS
     Dates: start: 20030721

REACTIONS (5)
  - BLOOD PRESSURE FLUCTUATION [None]
  - BRAIN DAMAGE [None]
  - CARBON DIOXIDE ABNORMAL [None]
  - CARDIAC ARREST [None]
  - PROCEDURAL COMPLICATION [None]
